FAERS Safety Report 19298251 (Version 3)
Quarter: 2022Q1

REPORT INFORMATION
  Report Type: Report from Study
  Country: JP (occurrence: JP)
  Receive Date: 20210525
  Receipt Date: 20220331
  Transmission Date: 20220424
  Serious: Yes (Hospitalization)
  Sender: FDA-Public Use
  Company Number: JP-CELLTRION INC.-2020JP024135

PATIENT

DRUGS (9)
  1. INFLIXIMAB-DYYB [Suspect]
     Active Substance: INFLIXIMAB-DYYB
     Indication: Crohn^s disease
     Dosage: 290 MG (WEIGHT: 58 KG)
     Route: 041
     Dates: start: 20181117, end: 20181117
  2. INFLIXIMAB-DYYB [Suspect]
     Active Substance: INFLIXIMAB-DYYB
     Dosage: 290 MILLIGRAM (WEIGHT: 58 KG)
     Route: 041
     Dates: start: 20190113, end: 20190113
  3. INFLIXIMAB-DYYB [Suspect]
     Active Substance: INFLIXIMAB-DYYB
     Dosage: 290 MILLIGRAM (WEIGHT: 58 KG)
     Route: 041
     Dates: start: 20190309, end: 20190309
  4. INFLIXIMAB-DYYB [Suspect]
     Active Substance: INFLIXIMAB-DYYB
     Dosage: 290 MILLIGRAM (WEIGHT: 58 KG)
     Route: 041
     Dates: start: 20190511, end: 20190511
  5. INFLIXIMAB-DYYB [Suspect]
     Active Substance: INFLIXIMAB-DYYB
     Dosage: 10 MG/KG, DOSE WAS INCREASED EVERY 8 WEEKS (FOR SURGERY)
     Route: 065
     Dates: start: 201909, end: 201911
  6. INFLIXIMAB-DYYB [Suspect]
     Active Substance: INFLIXIMAB-DYYB
     Dosage: 300 MG (WEIGHT: 60 KG)
     Route: 041
     Dates: start: 20191221, end: 20191221
  7. INFLIXIMAB-DYYB [Suspect]
     Active Substance: INFLIXIMAB-DYYB
     Dosage: 300 MILLIGRAM (WEIGHT: 60 KG)
     Route: 041
     Dates: start: 20201114, end: 20201114
  8. INFLIXIMAB-DYYB [Suspect]
     Active Substance: INFLIXIMAB-DYYB
     Dosage: 320 MG (WEIGHT: 62.4 KG)
     Route: 041
     Dates: start: 20211113, end: 20211113
  9. AZATHIOPRINE [Concomitant]
     Active Substance: AZATHIOPRINE
     Dosage: 50 MG/DAY
     Route: 048
     Dates: start: 20141025

REACTIONS (10)
  - Otitis media [Recovered/Resolved]
  - Cough variant asthma [Recovered/Resolved]
  - Rhinitis allergic [Not Recovered/Not Resolved]
  - Bronchitis [Recovered/Resolved]
  - Sinusitis [Recovered/Resolved]
  - Anaemia [Not Recovered/Not Resolved]
  - Nasopharyngitis [Recovered/Resolved]
  - Product use issue [Unknown]
  - Off label use [Unknown]
  - Overdose [Unknown]

NARRATIVE: CASE EVENT DATE: 20181215
